FAERS Safety Report 13069939 (Version 1)
Quarter: 2016Q4

REPORT INFORMATION
  Report Type: Spontaneous
  Country: BR (occurrence: BR)
  Receive Date: 20161228
  Receipt Date: 20161228
  Transmission Date: 20170207
  Serious: Yes (Other)
  Sender: FDA-Public Use
  Company Number: BR-SHIRE-BR201620323

PATIENT
  Age: 29 Year
  Sex: Female

DRUGS (4)
  1. DEPO-PROVERA [Concomitant]
     Active Substance: MEDROXYPROGESTERONE ACETATE
     Indication: POLYCYSTIC OVARIES
     Dosage: UNK, OTHER (EVERY 3 MONTHS)
     Route: 030
  2. MESACOL MMX [Suspect]
     Active Substance: MESALAMINE
     Indication: ENTERITIS
     Dosage: 1200 MG, 1X/DAY:QD
     Route: 048
     Dates: start: 201612, end: 201612
  3. MESACOL MMX [Suspect]
     Active Substance: MESALAMINE
     Dosage: UNK UNK, UNKNOWN
     Route: 048
     Dates: start: 201612
  4. MESACOL MMX [Suspect]
     Active Substance: MESALAMINE
     Indication: COLITIS
     Dosage: 1200 MG, 2X/DAY:BID
     Route: 048
     Dates: start: 20161202, end: 201612

REACTIONS (5)
  - Abdominal pain [Unknown]
  - Haematochezia [Unknown]
  - Abdominal distension [Unknown]
  - Diarrhoea [Unknown]
  - Pyrexia [Unknown]

NARRATIVE: CASE EVENT DATE: 20161209
